FAERS Safety Report 19799011 (Version 1)
Quarter: 2021Q3

REPORT INFORMATION
  Report Type: Spontaneous
  Country: CN (occurrence: CN)
  Receive Date: 20210907
  Receipt Date: 20210907
  Transmission Date: 20211014
  Serious: Yes (Life-Threatening, Hospitalization, Other)
  Sender: FDA-Public Use
  Company Number: CN-009507513-2109CHN000420

PATIENT
  Age: 69 Year
  Sex: Male

DRUGS (1)
  1. PEMBROLIZUMAB. [Suspect]
     Active Substance: PEMBROLIZUMAB
     Indication: OESOPHAGEAL CARCINOMA
     Dosage: 200 MILLIGRAM

REACTIONS (5)
  - Toxic epidermal necrolysis [Recovered/Resolved]
  - Immune-mediated hepatic disorder [Recovered/Resolved]
  - Immune-mediated myositis [Recovered/Resolved]
  - Immune-mediated myocarditis [Recovered/Resolved]
  - Stevens-Johnson syndrome [Recovered/Resolved]
